FAERS Safety Report 7551982 (Version 3)
Quarter: 2013Q2

REPORT INFORMATION
  Report Type: Spontaneous
  Country: US (occurrence: US)
  Receive Date: 20100824
  Receipt Date: 20130618
  Transmission Date: 20140414
  Serious: Yes (Other)
  Sender: FDA-Public Use
  Company Number: US-JNJFOC-20100804935

PATIENT
  Sex: Female
  Weight: 24.95 kg

DRUGS (12)
  1. REMICADE [Suspect]
     Indication: CROHN^S DISEASE
     Route: 042
     Dates: start: 20100803
  2. REMICADE [Suspect]
     Indication: CROHN^S DISEASE
     Route: 042
     Dates: start: 2010
  3. BENADRYL [Suspect]
     Indication: PREMEDICATION
  4. TYLENOL [Concomitant]
     Indication: PREMEDICATION
  5. HYDROCORTISONE [Concomitant]
     Indication: INAPPROPRIATE ANTIDIURETIC HORMONE SECRETION
  6. CARAFATE [Concomitant]
  7. PREVACID [Concomitant]
  8. DEPAKOTE [Concomitant]
  9. ERYTHROMYCIN [Concomitant]
     Indication: GASTROINTESTINAL MOTILITY DISORDER
  10. CORTISONE [Concomitant]
     Indication: INAPPROPRIATE ANTIDIURETIC HORMONE SECRETION
  11. NUTRITIONAL SUPPLEMENT [Concomitant]
  12. SIMETHICONE [Concomitant]
     Indication: FLATULENCE

REACTIONS (4)
  - Infusion related reaction [Recovered/Resolved]
  - Confusional state [Recovered/Resolved]
  - Contusion [Not Recovered/Not Resolved]
  - Tongue dry [Recovered/Resolved]
